FAERS Safety Report 14325503 (Version 2)
Quarter: 2018Q1

REPORT INFORMATION
  Report Type: Report from Study
  Country: DE (occurrence: DE)
  Receive Date: 20171226
  Receipt Date: 20180105
  Transmission Date: 20180509
  Serious: Yes (Other)
  Sender: FDA-Public Use
  Company Number: DE-BAUSCH-BL-2017-034607

PATIENT
  Age: 84 Year
  Sex: Male
  Weight: 82 kg

DRUGS (12)
  1. REVLIMID [Suspect]
     Active Substance: LENALIDOMIDE
     Route: 065
  2. PREDNISOLON-RATIOPHARM [Concomitant]
     Route: 048
     Dates: start: 20171111
  3. XARELTO [Concomitant]
     Active Substance: RIVAROXABAN
     Indication: PROPHYLAXIS
     Route: 048
  4. QUERTO [Concomitant]
     Indication: RESPIRATORY FAILURE
     Route: 048
  5. PRAVASTATIN ACCORD [Concomitant]
     Active Substance: PRAVASTATIN
     Indication: PROPHYLAXIS
     Route: 048
  6. VALSARTAN/HCT [Concomitant]
     Active Substance: HYDROCHLOROTHIAZIDE\VALSARTAN
     Indication: HYPERTENSION
     Route: 048
  7. DEXAMETHASONE. [Suspect]
     Active Substance: DEXAMETHASONE
     Indication: PLASMA CELL MYELOMA
     Route: 065
  8. PREDNISOLON-RATIOPHARM [Concomitant]
     Indication: THROMBOCYTOSIS
     Route: 048
     Dates: start: 20170928, end: 20171001
  9. PAMIDRONAT GRY [Concomitant]
     Indication: PROPHYLAXIS
     Dosage: 2 MILLIGRAM; 60MG MONTHLY
     Route: 041
     Dates: start: 20170623
  10. PREDNISOLON-RATIOPHARM [Concomitant]
     Route: 048
     Dates: start: 20171001, end: 20171110
  11. AMLODIPIN-RATIOPHARM [Concomitant]
     Indication: HYPERTENSION
     Route: 048
  12. REVLIMID [Suspect]
     Active Substance: LENALIDOMIDE
     Indication: PLASMA CELL MYELOMA
     Route: 065

REACTIONS (1)
  - Dermatitis allergic [Not Recovered/Not Resolved]

NARRATIVE: CASE EVENT DATE: 20170717
